FAERS Safety Report 8206255-X (Version None)
Quarter: 2012Q1

REPORT INFORMATION
  Report Type: 
  Country: None (occurrence: None)
  Receive Date: 20120313
  Receipt Date: 20120309
  Transmission Date: 20120608
  Serious: Yes (Death, Hospitalization)
  Sender: FDA-Public Use
  Company Number: PHEH2012US005551

PATIENT
  Sex: Male

DRUGS (1)
  1. AFINITOR [Suspect]
     Indication: LUNG CARCINOMA CELL TYPE UNSPECIFIED STAGE 0
     Dosage: 10 MG, QD
     Route: 048

REACTIONS (4)
  - RESPIRATORY DISTRESS [None]
  - DEPRESSED LEVEL OF CONSCIOUSNESS [None]
  - PULMONARY EMBOLISM [None]
  - SEPSIS [None]
